FAERS Safety Report 17241918 (Version 2)
Quarter: 2020Q1

REPORT INFORMATION
  Report Type: Report from Study
  Country: None (occurrence: US)
  Receive Date: 20200107
  Receipt Date: 20200308
  Transmission Date: 20200409
  Serious: Yes (Hospitalization)
  Sender: FDA-Public Use
  Company Number: US-ABBVIE-20K-163-3218077-00

PATIENT
  Age: 61 Year
  Sex: Female

DRUGS (10)
  1. VENCLEXTA [Suspect]
     Active Substance: VENETOCLAX
     Route: 048
     Dates: start: 201912
  2. VENCLEXTA [Suspect]
     Active Substance: VENETOCLAX
     Route: 048
     Dates: start: 20200204
  3. LISINOPRIL. [Concomitant]
     Active Substance: LISINOPRIL
     Indication: CARDIAC DISORDER
  4. MORPHINE [Concomitant]
     Active Substance: MORPHINE
     Indication: ABDOMINAL PAIN UPPER
  5. VENCLEXTA [Suspect]
     Active Substance: VENETOCLAX
     Indication: CHRONIC LYMPHOCYTIC LEUKAEMIA
     Route: 048
     Dates: start: 20190908, end: 201912
  6. BABY ASPIRIN [Concomitant]
     Active Substance: ASPIRIN
     Indication: CARDIAC DISORDER
  7. METOPROLOL. [Concomitant]
     Active Substance: METOPROLOL
     Indication: CARDIAC DISORDER
  8. DILAUDID [Concomitant]
     Active Substance: HYDROMORPHONE HYDROCHLORIDE
     Indication: ABDOMINAL PAIN UPPER
  9. IVIGLOB EX [Concomitant]
     Active Substance: HUMAN IMMUNOGLOBULIN G
     Indication: PRODUCT USED FOR UNKNOWN INDICATION
  10. IBRUTINIB [Concomitant]
     Active Substance: IBRUTINIB
     Indication: PRODUCT USED FOR UNKNOWN INDICATION

REACTIONS (14)
  - Vomiting [Recovered/Resolved]
  - Pyrexia [Unknown]
  - Colitis [Unknown]
  - Neutrophil count decreased [Unknown]
  - Immune system disorder [Not Recovered/Not Resolved]
  - Myocardial necrosis marker increased [Unknown]
  - Diarrhoea [Recovered/Resolved]
  - Lymphocyte count increased [Unknown]
  - Abdominal pain upper [Recovered/Resolved]
  - Blood count abnormal [Unknown]
  - Cardiac dysfunction [Unknown]
  - Cytomegalovirus infection [Unknown]
  - Pneumonia pseudomonal [Recovered/Resolved]
  - Asthenia [Not Recovered/Not Resolved]

NARRATIVE: CASE EVENT DATE: 2019
